FAERS Safety Report 7964091-3 (Version None)
Quarter: 2011Q4

REPORT INFORMATION
  Report Type: 
  Country: None (occurrence: None)
  Receive Date: 20111208
  Receipt Date: 20111202
  Transmission Date: 20120403
  Serious: Yes (Hospitalization)
  Sender: FDA-Public Use
  Company Number: US-BAYER-2011-113963

PATIENT
  Age: 48 Year
  Sex: Male

DRUGS (3)
  1. NEXAVAR [Suspect]
     Dosage: 200 MG, BID
     Route: 048
     Dates: start: 20111124
  2. NEXAVAR [Suspect]
     Indication: HEPATIC NEOPLASM MALIGNANT
     Dosage: 400 MG QAM
     Dates: start: 20111124
  3. NEXIUM [Concomitant]

REACTIONS (6)
  - GASTROINTESTINAL SOUNDS ABNORMAL [None]
  - FALL [None]
  - DYSURIA [None]
  - SWELLING [None]
  - DYSPEPSIA [None]
  - CHROMATURIA [None]
